FAERS Safety Report 6559294-9 (Version None)
Quarter: 2010Q1

REPORT INFORMATION
  Report Type: 
  Country: None (occurrence: None)
  Receive Date: 20100129
  Receipt Date: 20090901
  Transmission Date: 20100710
  Serious: Yes (Other)
  Sender: FDA-Public Use
  Company Number: US-ABBOTT-09P-163-0587893-00

PATIENT
  Sex: Female
  Weight: 55.842 kg

DRUGS (6)
  1. HUMIRA [Suspect]
     Indication: PSORIASIS
     Dosage: LOADING DOSE
     Dates: start: 20080901
  2. HUMIRA [Suspect]
     Dates: end: 20081008
  3. CADUET [Concomitant]
     Indication: BLOOD CHOLESTEROL
  4. GEMFIBROZIL [Concomitant]
     Indication: BLOOD PRESSURE
  5. AMLODIPINE [Concomitant]
     Indication: BLOOD CHOLESTEROL
  6. PRILOSEC OTC [Concomitant]
     Indication: DRUG USE FOR UNKNOWN INDICATION

REACTIONS (2)
  - DIVERTICULITIS [None]
  - PYREXIA [None]
